FAERS Safety Report 7632091-9 (Version None)
Quarter: 2011Q3

REPORT INFORMATION
  Report Type: 
  Country: None (occurrence: None)
  Receive Date: 20110725
  Receipt Date: 20110725
  Transmission Date: 20111222
  Serious: No
  Sender: FDA-Public Use
  Company Number: None

PATIENT
  Age: 53 Year
  Sex: Female
  Weight: 68.038 kg

DRUGS (1)
  1. LETROZOLE [Suspect]
     Indication: BREAST CANCER RECURRENT
     Dosage: 1 TABLET
     Dates: start: 20110627, end: 20110628

REACTIONS (4)
  - PRODUCT SUBSTITUTION ISSUE [None]
  - HEADACHE [None]
  - ADVERSE DRUG REACTION [None]
  - FEELING ABNORMAL [None]
